FAERS Safety Report 7719007-1 (Version None)
Quarter: 2011Q3

REPORT INFORMATION
  Report Type: 
  Country: None (occurrence: None)
  Receive Date: 20110830
  Receipt Date: 20110822
  Transmission Date: 20111222
  Serious: Yes (Hospitalization)
  Sender: FDA-Public Use
  Company Number: JP-GLAXOSMITHKLINE-B0742382A

PATIENT
  Age: 40 Year
  Sex: Male

DRUGS (3)
  1. GOODMIN [Concomitant]
     Indication: INSOMNIA
     Dosage: .25MG PER DAY
     Route: 048
     Dates: start: 20091101, end: 20110307
  2. LITHIUM CARBONATE [Concomitant]
  3. PAXIL [Suspect]
     Indication: DEPRESSION
     Dosage: 40MG PER DAY
     Route: 048
     Dates: start: 20091024, end: 20110307

REACTIONS (3)
  - MANIA [None]
  - ANGER [None]
  - AGGRESSION [None]
